FAERS Safety Report 13570728 (Version 1)
Quarter: 2017Q2

REPORT INFORMATION
  Report Type: Spontaneous
  Country: US (occurrence: US)
  Receive Date: 20170523
  Receipt Date: 20170523
  Transmission Date: 20170830
  Serious: No
  Sender: FDA-Public Use
  Company Number: US-BAUSCH-BL-2016-019853

PATIENT
  Age: 85 Year
  Sex: Female
  Weight: 49.94 kg

DRUGS (1)
  1. MESTINON [Suspect]
     Active Substance: PYRIDOSTIGMINE BROMIDE
     Indication: MYASTHENIA GRAVIS
     Dosage: THREE-FOURTH TABLET ALTERNATING WITH ONE-HALF TABLET EVERY THREE HOURS
     Route: 048
     Dates: start: 20150429

REACTIONS (3)
  - Product size issue [Unknown]
  - Choking sensation [Not Recovered/Not Resolved]
  - Drug ineffective [Unknown]

NARRATIVE: CASE EVENT DATE: 201608
